FAERS Safety Report 22182515 (Version 1)
Quarter: 2023Q2

REPORT INFORMATION
  Report Type: Spontaneous
  Country: FR (occurrence: FR)
  Receive Date: 20230406
  Receipt Date: 20230406
  Transmission Date: 20230722
  Serious: Yes (Other)
  Sender: FDA-Public Use
  Company Number: None

PATIENT
  Age: 53 Year
  Sex: Male

DRUGS (13)
  1. KETOPROFEN [Suspect]
     Active Substance: KETOPROFEN
     Indication: Metabolic surgery
     Dosage: UNSPECIFIED DOSAGE
     Route: 065
     Dates: start: 20221214, end: 20221220
  2. ESOMEPRAZOLE [Suspect]
     Active Substance: ESOMEPRAZOLE
     Indication: Prophylaxis against gastrointestinal ulcer
     Dosage: UNSPECIFIED DOSAGE
     Route: 065
     Dates: start: 20221214, end: 20221220
  3. PHLOROGLUCINOL [Suspect]
     Active Substance: PHLOROGLUCINOL
     Indication: Metabolic surgery
     Dosage: UNSPECIFIED DOSAGE
     Route: 065
     Dates: start: 20221214, end: 20221220
  4. MORPHINE [Suspect]
     Active Substance: MORPHINE
     Indication: Procedural pain
     Dosage: UNSPECIFIED DOSAGE
     Route: 065
     Dates: start: 20221214, end: 20221214
  5. CEFTRIAXONE SODIUM [Suspect]
     Active Substance: CEFTRIAXONE SODIUM
     Indication: Metabolic surgery
     Route: 065
     Dates: start: 20221214, end: 20221214
  6. CISATRACURIUM [Suspect]
     Active Substance: CISATRACURIUM
     Indication: Metabolic surgery
     Dosage: UNSPECIFIED DOSAGE
     Route: 065
     Dates: start: 20221214, end: 20221214
  7. GENTAMICIN [Suspect]
     Active Substance: GENTAMICIN
     Indication: Metabolic surgery
     Dosage: DOSAGE NOT SPECIFIED
     Route: 065
     Dates: start: 20221214, end: 20221214
  8. ACUPAN [Suspect]
     Active Substance: NEFOPAM HYDROCHLORIDE
     Indication: Procedural pain
     Dosage: DOSAGE NOT SPECIFIED
     Route: 065
     Dates: start: 20221214, end: 20221214
  9. DEXAMETHASONE [Suspect]
     Active Substance: DEXAMETHASONE
     Indication: Metabolic surgery
     Dosage: DOSAGE NOT SPECIFIED
     Route: 065
     Dates: start: 20221214, end: 20221214
  10. LOVENOX [Suspect]
     Active Substance: ENOXAPARIN SODIUM
     Indication: Thrombosis prophylaxis
     Dosage: IN CARTRIDGE, STRENGTH : 4,000 ANTI-XA IU/0.4 ML
     Route: 065
     Dates: start: 20221214, end: 20221214
  11. LIDOCAINE [Suspect]
     Active Substance: LIDOCAINE
     Indication: Metabolic surgery
     Dosage: DOSAGE NOT SPECIFIED
     Route: 065
     Dates: start: 20221214, end: 20221214
  12. EPHEDRINE HYDROCHLORIDE [Suspect]
     Active Substance: EPHEDRINE HYDROCHLORIDE
     Indication: Metabolic surgery
     Dosage: DOSAGE NOT SPECIFIED
     Route: 065
     Dates: start: 20221214, end: 20221214
  13. PROPOFOL LIPURO [Suspect]
     Active Substance: PROPOFOL
     Indication: Metabolic surgery
     Dosage: DOSAGE NOT SPECIFIED
     Route: 065
     Dates: start: 20221214, end: 20221214

REACTIONS (2)
  - Eosinophilia [Recovered/Resolved]
  - Toxic skin eruption [Recovered/Resolved]

NARRATIVE: CASE EVENT DATE: 20221214
